FAERS Safety Report 12978178 (Version 1)
Quarter: 2016Q4

REPORT INFORMATION
  Report Type: Spontaneous
  Country: US (occurrence: US)
  Receive Date: 20161126
  Receipt Date: 20161126
  Transmission Date: 20170207
  Serious: Yes (Disabling)
  Sender: FDA-Public Use
  Company Number: None

PATIENT
  Age: 69 Year
  Sex: Female
  Weight: 89.1 kg

DRUGS (12)
  1. VITAMIN B12 [Concomitant]
     Active Substance: CYANOCOBALAMIN
  2. NYSTATIN CREAM [Concomitant]
     Active Substance: NYSTATIN
  3. ALEVE [Concomitant]
     Active Substance: NAPROXEN SODIUM
  4. LISINOPRIL. [Concomitant]
     Active Substance: LISINOPRIL
  5. FLUCONAZOLE. [Concomitant]
     Active Substance: FLUCONAZOLE
  6. VITD3 [Concomitant]
  7. AMOXICILLIN. [Concomitant]
     Active Substance: AMOXICILLIN
  8. VIT K-2 [Concomitant]
  9. ATORVASTATIN [Suspect]
     Active Substance: ATORVASTATIN
     Indication: BLOOD CHOLESTEROL INCREASED
     Dosage: ?          QUANTITY:1 TABLET(S);?
     Route: 048
     Dates: start: 20131001, end: 20161020
  10. METHOTREXATE. [Concomitant]
     Active Substance: METHOTREXATE
  11. LASIX [Concomitant]
     Active Substance: FUROSEMIDE
  12. IRON [Concomitant]
     Active Substance: IRON

REACTIONS (3)
  - Myalgia [None]
  - General physical health deterioration [None]
  - Tendon pain [None]

NARRATIVE: CASE EVENT DATE: 20160922
